FAERS Safety Report 19348990 (Version 1)
Quarter: 2021Q2

REPORT INFORMATION
  Report Type: Spontaneous
  Country: US (occurrence: US)
  Receive Date: 20210528
  Receipt Date: 20210528
  Transmission Date: 20210717
  Serious: No
  Sender: FDA-Public Use
  Company Number: None

PATIENT
  Age: 85 Year
  Sex: Female

DRUGS (10)
  1. ESBRIET [Suspect]
     Active Substance: PIRFENIDONE
     Indication: PULMONARY FIBROSIS
     Route: 048
     Dates: start: 20180109
  2. PROBIOTIC [Concomitant]
     Active Substance: PROBIOTICS NOS
  3. ZYRTEC [Concomitant]
     Active Substance: CETIRIZINE HYDROCHLORIDE
  4. CENTRUM [Concomitant]
     Active Substance: VITAMINS
  5. ALBUTEROL. [Concomitant]
     Active Substance: ALBUTEROL
  6. ALCOHOL SWAB [Concomitant]
     Active Substance: ISOPROPYL ALCOHOL
  7. ASPRIN LOW [Concomitant]
  8. BISOPROL FUM [Concomitant]
     Active Substance: BISOPROLOL FUMARATE
  9. PRESERVISION [Concomitant]
     Active Substance: MINERALS\VITAMINS
  10. TRUAN/HCTZ [Concomitant]

REACTIONS (1)
  - Hospitalisation [None]

NARRATIVE: CASE EVENT DATE: 20210521
